FAERS Safety Report 15699435 (Version 4)
Quarter: 2019Q3

REPORT INFORMATION
  Report Type: Report from Study
  Country: DE (occurrence: DE)
  Receive Date: 20181207
  Receipt Date: 20190704
  Transmission Date: 20191004
  Serious: Yes (Hospitalization)
  Sender: FDA-Public Use
  Company Number: DE-ROCHE-2225687

PATIENT
  Age: 65 Year
  Sex: Male
  Weight: 91 kg

DRUGS (33)
  1. INDAPAMID [Concomitant]
     Active Substance: INDAPAMIDE
     Indication: HYPERTENSION
     Route: 048
     Dates: start: 2003
  2. METAMIZOL [Concomitant]
     Active Substance: METAMIZOLE SODIUM
     Indication: PAIN
     Route: 048
     Dates: start: 20181015
  3. TRIMIPRAMINE [Concomitant]
     Active Substance: TRIMIPRAMINE
     Indication: PROPHYLAXIS
     Route: 048
     Dates: start: 201811
  4. HYDROCORTISONE. [Concomitant]
     Active Substance: HYDROCORTISONE
     Route: 048
     Dates: start: 20190111, end: 20190118
  5. COBIMETINIB. [Suspect]
     Active Substance: COBIMETINIB
     Indication: MALIGNANT MELANOMA
     Dosage: DATE OF MOST RECENT DOSE OF COBIMETINIB (60 MG)  PRIOR TO AE ONSET: 02/DEC/2018?ON A 21 DAY ON AND 7
     Route: 048
     Dates: start: 20181119
  6. ATEZOLIZUMAB. [Suspect]
     Active Substance: ATEZOLIZUMAB
     Indication: MALIGNANT MELANOMA
     Dosage: DATE OF MOST RECENT DOSE OF ATEZOLIZUMAB PRIOR TO EVENT ONSET: 19/NOV/2018
     Route: 042
     Dates: start: 20181119
  7. OLMESARTAN [Concomitant]
     Active Substance: OLMESARTAN
     Indication: HYPERTENSION
     Route: 048
     Dates: start: 20181107
  8. CETIRIZINE [Concomitant]
     Active Substance: CETIRIZINE HYDROCHLORIDE
     Indication: URTICARIA
     Route: 048
     Dates: start: 20190103
  9. POTASSIUM CITRATE. [Concomitant]
     Active Substance: POTASSIUM CITRATE
     Route: 048
     Dates: start: 20190211
  10. PREDNISOLONE. [Concomitant]
     Active Substance: PREDNISOLONE
     Route: 048
     Dates: start: 20190301, end: 20190304
  11. OLMESARTAN [Concomitant]
     Active Substance: OLMESARTAN
     Indication: HYPERTENSION
     Route: 048
     Dates: start: 2003, end: 20181106
  12. HYDROCORTISONE. [Concomitant]
     Active Substance: HYDROCORTISONE
     Indication: RASH PUSTULAR
     Dosage: 0.1 OTHER
     Route: 061
     Dates: start: 20181127
  13. PREDNISOLONE. [Concomitant]
     Active Substance: PREDNISOLONE
     Route: 048
     Dates: start: 20190317, end: 20190320
  14. PANTOPRAZOL [PANTOPRAZOLE] [Concomitant]
     Active Substance: PANTOPRAZOLE
     Indication: PROPHYLAXIS
     Route: 048
     Dates: start: 2014
  15. HYDROCORTISONE. [Concomitant]
     Active Substance: HYDROCORTISONE
     Route: 048
     Dates: start: 20190127, end: 20190210
  16. PARACETAMOL [Concomitant]
     Active Substance: ACETAMINOPHEN
     Indication: PROPHYLAXIS
     Route: 048
     Dates: start: 20190114, end: 20190114
  17. AMLODIPINE [Concomitant]
     Active Substance: AMLODIPINE BESYLATE
     Indication: HYPERTENSION
     Route: 048
     Dates: start: 2003, end: 20181106
  18. PRAVASTATIN SODIUM. [Concomitant]
     Active Substance: PRAVASTATIN SODIUM
     Indication: HYPERCHOLESTEROLAEMIA
     Route: 048
     Dates: start: 2003
  19. DIMETINDENE [Concomitant]
     Active Substance: DIMETHINDENE
     Indication: URTICARIA
     Route: 048
     Dates: start: 20190102, end: 20190102
  20. HYDROCORTISONE. [Concomitant]
     Active Substance: HYDROCORTISONE
     Indication: URTICARIA
     Route: 048
     Dates: start: 20190103, end: 20190110
  21. HYDROCORTISONE. [Concomitant]
     Active Substance: HYDROCORTISONE
     Route: 048
     Dates: start: 20190119, end: 20190126
  22. POTASSIUM CITRATE. [Concomitant]
     Active Substance: POTASSIUM CITRATE
     Indication: HYPOKALAEMIA
     Route: 048
     Dates: start: 20190116, end: 20190118
  23. PREDNISOLONE. [Concomitant]
     Active Substance: PREDNISOLONE
     Route: 048
     Dates: start: 20190309, end: 20190312
  24. AMLODIPINE [Concomitant]
     Active Substance: AMLODIPINE BESYLATE
     Route: 048
     Dates: start: 20181107
  25. PREDNISOLONE. [Concomitant]
     Active Substance: PREDNISOLONE
     Indication: DYSPNOEA
     Route: 042
     Dates: start: 20190211, end: 20190211
  26. DIMETINDENE [Concomitant]
     Active Substance: DIMETHINDENE
     Indication: DYSPNOEA
     Route: 042
     Dates: start: 20190211, end: 20190211
  27. DEXAMETHASONE. [Concomitant]
     Active Substance: DEXAMETHASONE
     Indication: DYSPNOEA
     Route: 042
     Dates: start: 20190211, end: 20190211
  28. PREDNISOLONE. [Concomitant]
     Active Substance: PREDNISOLONE
     Route: 048
     Dates: start: 20190313, end: 20190316
  29. DOXYCYCLINE. [Concomitant]
     Active Substance: DOXYCYCLINE
     Indication: PROPHYLAXIS
     Route: 048
     Dates: start: 20190109, end: 20190116
  30. FEXOFENADINE [Concomitant]
     Active Substance: FEXOFENADINE HYDROCHLORIDE
     Indication: DYSPNOEA
     Route: 048
     Dates: start: 20190211, end: 20190211
  31. PREDNISOLONE. [Concomitant]
     Active Substance: PREDNISOLONE
     Indication: ALANINE AMINOTRANSFERASE INCREASED
     Route: 048
     Dates: start: 20190225, end: 20190228
  32. PREDNISOLONE. [Concomitant]
     Active Substance: PREDNISOLONE
     Route: 048
     Dates: start: 20190305, end: 20190308
  33. DIMETINDENE [Concomitant]
     Active Substance: DIMETHINDENE
     Indication: PROPHYLAXIS
     Route: 042
     Dates: start: 20190114, end: 20190114

REACTIONS (1)
  - Colitis [Recovered/Resolved]

NARRATIVE: CASE EVENT DATE: 20181202
